FAERS Safety Report 8009377-1 (Version None)
Quarter: 2011Q4

REPORT INFORMATION
  Report Type: 
  Country: None (occurrence: None)
  Receive Date: 20111227
  Receipt Date: 20111222
  Transmission Date: 20120403
  Serious: Yes (Death)
  Sender: FDA-Public Use
  Company Number: ES-SANOFI-AVENTIS-2011SA084398

PATIENT
  Age: 71 Year
  Sex: Male
  Weight: 51 kg

DRUGS (2)
  1. DOCETAXEL [Suspect]
     Route: 042
     Dates: start: 20111128, end: 20111128
  2. CISPLATIN [Suspect]
     Route: 042
     Dates: start: 20111128, end: 20111128

REACTIONS (4)
  - HYPONATRAEMIA [None]
  - HYPOKALAEMIA [None]
  - NEUTROPENIA [None]
  - RENAL FAILURE [None]
